FAERS Safety Report 26154874 (Version 1)
Quarter: 2025Q4

REPORT INFORMATION
  Report Type: Spontaneous
  Country: US (occurrence: US)
  Receive Date: 20251215
  Receipt Date: 20251215
  Transmission Date: 20260117
  Serious: Yes (Other)
  Sender: SANOFI AVENTIS
  Company Number: US-SA-2025SA370155

PATIENT
  Age: 80 Year

DRUGS (1)
  1. MULTAQ [Suspect]
     Active Substance: DRONEDARONE
     Indication: Atrial fibrillation
     Dosage: 400 MG, TWICE
     Route: 048

REACTIONS (1)
  - Metastatic neoplasm [Unknown]

NARRATIVE: CASE EVENT DATE: 20251205
